FAERS Safety Report 17101880 (Version 5)
Quarter: 2021Q1

REPORT INFORMATION
  Report Type: Spontaneous
  Country: US (occurrence: US)
  Receive Date: 20191202
  Receipt Date: 20210319
  Transmission Date: 20210419
  Serious: Yes (Other)
  Sender: FDA-Public Use
  Company Number: US-PFIZER INC-2016587489

PATIENT
  Age: 74 Year
  Sex: Male

DRUGS (5)
  1. TOVIAZ [Suspect]
     Active Substance: FESOTERODINE FUMARATE
     Indication: BENIGN PROSTATIC HYPERPLASIA
     Dosage: 8 MG, DAILY
     Route: 048
  2. TOVIAZ [Suspect]
     Active Substance: FESOTERODINE FUMARATE
     Indication: LOWER URINARY TRACT SYMPTOMS
     Dosage: 4 MG, DAILY
     Route: 048
  3. TOVIAZ [Suspect]
     Active Substance: FESOTERODINE FUMARATE
     Dosage: 2 MG, 2X/DAY
     Route: 048
  4. TOVIAZ [Suspect]
     Active Substance: FESOTERODINE FUMARATE
     Dosage: 2 MG, 2X/DAY (CUTS IN TWO THE 4 MG TABLET AND TAKES 1/2 IN MORNING AND 1/2 IN THE EVENING)
     Route: 048
  5. TOVIAZ [Suspect]
     Active Substance: FESOTERODINE FUMARATE
     Dosage: 2 MG, 1X/DAY (CUTS IN TWO THE 4 MG TABLET AND JUST TAKES 2 MG ONCE A DAY IN THE MORNING)
     Route: 048

REACTIONS (9)
  - Condition aggravated [Unknown]
  - Arthralgia [Unknown]
  - Off label use [Unknown]
  - Hip fracture [Unknown]
  - Muscle tightness [Unknown]
  - Wrong technique in product usage process [Unknown]
  - Intentional product use issue [Unknown]
  - Urinary retention [Unknown]
  - Bladder disorder [Unknown]
